FAERS Safety Report 10032826 (Version 1)
Quarter: 2014Q1

REPORT INFORMATION
  Report Type: Spontaneous
  Country: CA (occurrence: CA)
  Receive Date: 20140324
  Receipt Date: 20140324
  Transmission Date: 20141002
  Serious: Yes (Other)
  Sender: FDA-Public Use
  Company Number: CA-BAXTER-2014BAX013418

PATIENT
  Sex: Female

DRUGS (2)
  1. TISSEEL KIT VH S/D [Suspect]
     Indication: PTERYGIUM OPERATION
     Dosage: 2 CC VOLUME, A FEW DROPS WERE USED
     Route: 061
     Dates: start: 20140310, end: 20140310
  2. TISSEEL KIT VH S/D [Suspect]
     Indication: OFF LABEL USE

REACTIONS (1)
  - Drug ineffective [Unknown]
